FAERS Safety Report 11862858 (Version 2)
Quarter: 2016Q1

REPORT INFORMATION
  Report Type: Spontaneous
  Country: US (occurrence: US)
  Receive Date: 20151223
  Receipt Date: 20160302
  Transmission Date: 20160526
  Serious: Yes (Hospitalization)
  Sender: FDA-Public Use
  Company Number: US-BEH-2015056276

PATIENT
  Age: 22 Year
  Sex: Female
  Weight: 111 kg

DRUGS (21)
  1. FIORICET [Concomitant]
     Active Substance: ACETAMINOPHEN\BUTALBITAL\CAFFEINE
  2. PLAQUENIL [Concomitant]
     Active Substance: HYDROXYCHLOROQUINE SULFATE
  3. HIZENTRA [Suspect]
     Active Substance: HUMAN IMMUNOGLOBULIN G
     Indication: IMMUNODEFICIENCY COMMON VARIABLE
     Dosage: 1 GM VIALS
     Route: 058
     Dates: start: 20150731
  4. HIZENTRA [Suspect]
     Active Substance: HUMAN IMMUNOGLOBULIN G
     Dosage: 4 GM VIALS
     Route: 058
     Dates: start: 20150731
  5. DICLOFENAC [Concomitant]
     Active Substance: DICLOFENAC
  6. CALCIUM + VITAMIN D [Concomitant]
     Active Substance: CALCIUM\VITAMIN D
  7. FISH OIL [Concomitant]
     Active Substance: FISH OIL
  8. SINGULAIR [Concomitant]
     Active Substance: MONTELUKAST SODIUM
  9. COUMADIN [Concomitant]
     Active Substance: WARFARIN SODIUM
  10. TOPIRAMATE. [Concomitant]
     Active Substance: TOPIRAMATE
  11. ZYRTEC [Concomitant]
     Active Substance: CETIRIZINE HYDROCHLORIDE
  12. HIZENTRA [Suspect]
     Active Substance: HUMAN IMMUNOGLOBULIN G
     Dosage: RESTARTED HER INFUSIONS ON AN UNKNOWN DATE
  13. MICROGESTIN [Suspect]
     Active Substance: ETHINYL ESTRADIOL\NORETHINDRONE ACETATE
     Indication: ORAL CONTRACEPTION
  14. DULOXETINE. [Concomitant]
     Active Substance: DULOXETINE
  15. MONTELUKAST [Concomitant]
     Active Substance: MONTELUKAST SODIUM
  16. MULTIVITAMINS [Concomitant]
     Active Substance: VITAMINS
  17. CIMETIDINE [Concomitant]
     Active Substance: CIMETIDINE
  18. ZINC [Concomitant]
     Active Substance: ZINC\ZINC CHLORIDE
  19. AMITRIPTYLINE [Concomitant]
     Active Substance: AMITRIPTYLINE
  20. CELEBREX [Concomitant]
     Active Substance: CELECOXIB
  21. VITAMIN C - ROSE HIP [Concomitant]

REACTIONS (1)
  - Pulmonary embolism [Unknown]

NARRATIVE: CASE EVENT DATE: 20151031
